FAERS Safety Report 5974830-9 (Version None)
Quarter: 2008Q4

REPORT INFORMATION
  Report Type: 
  Country: None (occurrence: None)
  Receive Date: 20081201
  Receipt Date: 20081201
  Transmission Date: 20090506
  Serious: Yes (Death)
  Sender: FDA-Public Use
  Company Number: CH-PFIZER INC-2008100952

PATIENT
  Sex: Male

DRUGS (3)
  1. SOLU-MEDROL [Suspect]
     Indication: CROHN'S DISEASE
     Route: 042
     Dates: start: 20030909, end: 20080414
  2. REMICADE [Suspect]
     Indication: CROHN'S DISEASE
     Route: 042
     Dates: start: 20030909, end: 20080414
  3. PURINETHOL [Suspect]
     Indication: CROHN'S DISEASE
     Route: 048
     Dates: end: 20030101

REACTIONS (1)
  - NEOPLASM MALIGNANT [None]
